FAERS Safety Report 7058908-7 (Version None)
Quarter: 2010Q4

REPORT INFORMATION
  Report Type: 
  Country: None (occurrence: None)
  Receive Date: 20101022
  Receipt Date: 20101008
  Transmission Date: 20110411
  Serious: Yes (Congenital Anomaly)
  Sender: FDA-Public Use
  Company Number: NL-ELI_LILLY_AND_COMPANY-NL201008008468

PATIENT

DRUGS (7)
  1. PROZAC [Suspect]
     Dosage: 20 MG, DAILY (1/D)
     Route: 064
  2. FOLIC ACID [Concomitant]
     Route: 064
  3. SOFRADEX [Concomitant]
     Route: 064
  4. ANTAGEL /00002901/ [Concomitant]
     Route: 064
  5. CLOTRIMAZOLE [Concomitant]
     Dosage: 500 MG, UNK
     Route: 064
  6. PRILOSEC [Concomitant]
     Dosage: 40 MG, UNK
     Route: 064
  7. PARACETAMOL [Concomitant]
     Route: 064

REACTIONS (5)
  - CONGENITAL ANOMALY [None]
  - DRUG EXPOSURE DURING PREGNANCY [None]
  - DYSMORPHISM [None]
  - HYPERMETROPIA [None]
  - PENILE SIZE REDUCED [None]
